FAERS Safety Report 6292947-9 (Version None)
Quarter: 2009Q3

REPORT INFORMATION
  Report Type: 
  Country: None (occurrence: None)
  Receive Date: 20090729
  Receipt Date: 20090720
  Transmission Date: 20100115
  Serious: Yes (Other)
  Sender: FDA-Public Use
  Company Number: ADR7992009

PATIENT
  Age: 56 Year
  Sex: Female

DRUGS (1)
  1. ALENDRONIC ACID (MFR: UNKNOWN) [Suspect]
     Indication: OSTEOPOROSIS
     Dosage: 70 MG WEEKLY ORAL USE
     Route: 048
     Dates: start: 20080829, end: 20081030

REACTIONS (5)
  - ARTHRALGIA [None]
  - DYSPEPSIA [None]
  - EYE PAIN [None]
  - HEADACHE [None]
  - SCLERITIS [None]
